FAERS Safety Report 26215430 (Version 1)
Quarter: 2025Q4

REPORT INFORMATION
  Report Type: Report from Study
  Country: US (occurrence: US)
  Receive Date: 20251231
  Receipt Date: 20251231
  Transmission Date: 20260118
  Serious: Yes (Hospitalization)
  Sender: IPSEN BIOPHARMACEUTICALS, INC.
  Company Number: US-IPSEN Group, Research and Development-2025-31450

PATIENT
  Age: 1 Year
  Sex: Male

DRUGS (2)
  1. BYLVAY [Suspect]
     Active Substance: ODEVIXIBAT
     Indication: Alagille syndrome
     Dosage: FORM OF ADMINISTRATION: PELLETS?ROUTE: SPRINKLE/MIX CONTENTS OF TWO 600 MCG ORAL PELLETS WITH/OVER FOOD AND TAKE BY MOUTH ONCE DAILY WITH A MEAL.
     Route: 048
     Dates: start: 20250728, end: 20251201
  2. BYLVAY [Suspect]
     Active Substance: ODEVIXIBAT
     Dosage: 600MCG, ORAL DAILY
     Route: 048
     Dates: start: 20250725

REACTIONS (1)
  - Liver transplant [Unknown]

NARRATIVE: CASE EVENT DATE: 20251201
